FAERS Safety Report 11240157 (Version 1)
Quarter: 2015Q3

REPORT INFORMATION
  Report Type: Spontaneous
  Country: US (occurrence: None)
  Receive Date: 20150701
  Receipt Date: 20150701
  Transmission Date: 20151125
  Serious: Yes (Hospitalization)
  Sender: FDA-Public Use
  Company Number: None

PATIENT
  Age: 56 Year
  Sex: Female

DRUGS (14)
  1. MODAFINIL. [Concomitant]
     Active Substance: MODAFINIL
  2. VITAMIN B12 [Concomitant]
     Active Substance: CYANOCOBALAMIN
  3. AMPYRA [Suspect]
     Active Substance: DALFAMPRIDINE
     Indication: MULTIPLE SCLEROSIS
     Dosage: 10MG, BID, ORAL
     Route: 048
     Dates: start: 201202
  4. FINGOLIMOD [Concomitant]
     Active Substance: FINGOLIMOD
  5. LOSARTAN. [Concomitant]
     Active Substance: LOSARTAN
  6. BACLOFEN. [Concomitant]
     Active Substance: BACLOFEN
  7. WARFARIN [Concomitant]
     Active Substance: WARFARIN
  8. FOLIC ACID. [Concomitant]
     Active Substance: FOLIC ACID
  9. OXYBUTYNIN [Concomitant]
     Active Substance: OXYBUTYNIN
  10. LORAZEPAM. [Concomitant]
     Active Substance: LORAZEPAM
  11. CHOLECALCIFEROL [Concomitant]
     Active Substance: CHOLECALCIFEROL
  12. ALENDRONATE [Concomitant]
     Active Substance: ALENDRONATE SODIUM
  13. FLUOXETINE [Concomitant]
     Active Substance: FLUOXETINE\FLUOXETINE HYDROCHLORIDE
  14. CLONAZEPAM. [Concomitant]
     Active Substance: CLONAZEPAM

REACTIONS (1)
  - Pneumonia [None]

NARRATIVE: CASE EVENT DATE: 20150606
